FAERS Safety Report 25975653 (Version 1)
Quarter: 2025Q4

REPORT INFORMATION
  Report Type: Spontaneous
  Country: US (occurrence: None)
  Receive Date: 20251029
  Receipt Date: 20251029
  Transmission Date: 20260117
  Serious: Yes (Hospitalization)
  Sender: FDA-CTU
  Company Number: None

PATIENT
  Age: 87 Year
  Sex: Female

DRUGS (13)
  1. LENALIDOMIDE [Suspect]
     Active Substance: LENALIDOMIDE
     Indication: Plasma cell myeloma
     Dosage: FREQUENCY : DAILY;?
     Route: 048
  2. PROPRANOLOL [Suspect]
     Active Substance: PROPRANOLOL HYDROCHLORIDE
  3. AMLODIPINE [Suspect]
     Active Substance: AMLODIPINE BESYLATE
  4. ACYCLOVIR [Concomitant]
     Active Substance: ACYCLOVIR
  5. ACYCLOVIR [Concomitant]
     Active Substance: ACYCLOVIR
  6. AMLODIPINE [Concomitant]
     Active Substance: AMLODIPINE BESYLATE
  7. CALCIUM 500 TAB +D [Concomitant]
  8. DARZALEX INJ FASPRO [Concomitant]
  9. DEXAMETHASONE [Concomitant]
     Active Substance: DEXAMETHASONE
  10. GABAPENTIN [Concomitant]
     Active Substance: GABAPENTIN
  11. LEVOTHYROXIN INJ 100MCG [Concomitant]
  12. LIDODERM DIS 5% PATCH [Concomitant]
  13. MAGNESIUM TAB 400MG [Concomitant]

REACTIONS (3)
  - Intentional dose omission [None]
  - Dizziness [None]
  - Diarrhoea [None]

NARRATIVE: CASE EVENT DATE: 20251014
